FAERS Safety Report 6257583-9 (Version None)
Quarter: 2009Q3

REPORT INFORMATION
  Report Type: 
  Country: None (occurrence: None)
  Receive Date: 20090702
  Receipt Date: 20090617
  Transmission Date: 20100115
  Serious: Yes (Other)
  Sender: FDA-Public Use
  Company Number: 2009-1211

PATIENT
  Age: 32 Year
  Sex: Male

DRUGS (1)
  1. DYSPORT [Suspect]
     Indication: HYPERTONIC BLADDER
     Dosage: (1000 IU,SINGEL CYCLE, INTRAMUSCULAR
     Route: 030
     Dates: start: 20090308

REACTIONS (5)
  - ACTIVITIES OF DAILY LIVING IMPAIRED [None]
  - FALL [None]
  - HIP FRACTURE [None]
  - MUSCULAR WEAKNESS [None]
  - NEUROMUSCULAR TOXICITY [None]
